FAERS Safety Report 7893430-7 (Version None)
Quarter: 2011Q4

REPORT INFORMATION
  Report Type: 
  Country: None (occurrence: None)
  Receive Date: 20111104
  Receipt Date: 20110922
  Transmission Date: 20120403
  Serious: Yes (Other)
  Sender: FDA-Public Use
  Company Number: US-ROCHE-GNE324792

PATIENT
  Age: 11 Year
  Sex: Female

DRUGS (2)
  1. NUTROPIN AQ [Suspect]
     Indication: PRODUCT USED FOR UNKNOWN INDICATION
     Route: 058
  2. NUTROPIN AQ [Suspect]
     Route: 058

REACTIONS (1)
  - INCORRECT DOSE ADMINISTERED [None]
